FAERS Safety Report 12338698 (Version 3)
Quarter: 2016Q3

REPORT INFORMATION
  Report Type: Spontaneous
  Country: US (occurrence: US)
  Receive Date: 20160505
  Receipt Date: 20160826
  Transmission Date: 20161109
  Serious: Yes (Other)
  Sender: FDA-Public Use
  Company Number: US-GLAXOSMITHKLINE-US2016056490

PATIENT
  Sex: Female

DRUGS (9)
  1. COREG CR [Suspect]
     Active Substance: CARVEDILOL PHOSPHATE
     Dosage: 20 MG, BID
  2. ASPIRIN. [Concomitant]
     Active Substance: ASPIRIN
  3. PLAVIX [Concomitant]
     Active Substance: CLOPIDOGREL BISULFATE
  4. COREG CR [Suspect]
     Active Substance: CARVEDILOL PHOSPHATE
     Indication: MYOCARDIAL INFARCTION
     Dosage: 40 MG, 1D
     Route: 048
  5. BIOTIN [Concomitant]
     Active Substance: BIOTIN
  6. LASIX [Concomitant]
     Active Substance: FUROSEMIDE
  7. HYDROCHLOROTHIAZIDE. [Concomitant]
     Active Substance: HYDROCHLOROTHIAZIDE
  8. FOLIC ACID. [Concomitant]
     Active Substance: FOLIC ACID
  9. HYDRALAZINE [Concomitant]
     Active Substance: HYDRALAZINE HYDROCHLORIDE

REACTIONS (4)
  - Arrhythmia [Unknown]
  - Therapeutic response decreased [Unknown]
  - Heart rate increased [Recovering/Resolving]
  - Heart rate irregular [Unknown]
